FAERS Safety Report 17612496 (Version 3)
Quarter: 2020Q2

REPORT INFORMATION
  Report Type: Spontaneous
  Country: US (occurrence: US)
  Receive Date: 20200401
  Receipt Date: 20200627
  Transmission Date: 20200713
  Serious: Yes (Hospitalization, Other)
  Sender: FDA-Public Use
  Company Number: US-BRISTOL-MYERS SQUIBB COMPANY-BMS-2020-027530

PATIENT
  Age: 55 Year
  Sex: Female
  Weight: 56.7 kg

DRUGS (6)
  1. OPSUMIT [Concomitant]
     Active Substance: MACITENTAN
     Indication: PRODUCT USED FOR UNKNOWN INDICATION
     Route: 065
  2. REMODULIN [Suspect]
     Active Substance: TREPROSTINIL
     Dosage: UNK CONTINUING
     Route: 041
     Dates: start: 20171128
  3. REMODULIN [Suspect]
     Active Substance: TREPROSTINIL
     Indication: PULMONARY HYPERTENSION
     Dosage: 0.062 MICROGRAM/KILOGRAM
     Route: 042
     Dates: start: 20171017
  4. REMODULIN [Suspect]
     Active Substance: TREPROSTINIL
     Dosage: 0.060 MICROGRAM/KILOGRAM CONTINUING
     Route: 041
     Dates: start: 20171017
  5. ELIQUIS [Suspect]
     Active Substance: APIXABAN
     Indication: PRODUCT USED FOR UNKNOWN INDICATION
     Route: 065
  6. ADCIRCA [Concomitant]
     Active Substance: TADALAFIL
     Indication: PRODUCT USED FOR UNKNOWN INDICATION
     Route: 065

REACTIONS (17)
  - Thrombophlebitis superficial [Unknown]
  - Device related sepsis [Unknown]
  - Device dislocation [Unknown]
  - Heart rate increased [Unknown]
  - Cough [Unknown]
  - Dyspnoea exertional [Unknown]
  - Weight decreased [Unknown]
  - Device use error [Unknown]
  - Device infusion issue [Unknown]
  - Deep vein thrombosis [Unknown]
  - Dyspnoea at rest [Unknown]
  - Diverticulum [Unknown]
  - Device related thrombosis [Unknown]
  - Mucous stools [Unknown]
  - Hepatic cirrhosis [Unknown]
  - Flatulence [Unknown]
  - Blood viscosity decreased [Unknown]

NARRATIVE: CASE EVENT DATE: 201912
